FAERS Safety Report 9068492 (Version 1)
Quarter: 2013Q1

REPORT INFORMATION
  Report Type: Spontaneous
  Country: US (occurrence: None)
  Receive Date: 20130212
  Receipt Date: 20130212
  Transmission Date: 20140127
  Serious: Yes (Other)
  Sender: FDA-Public Use
  Company Number: None

PATIENT
  Age: 56 Year
  Sex: Male
  Weight: 72.58 kg

DRUGS (2)
  1. EQUATE TUSSIN CF [Suspect]
     Indication: COUGH
     Dosage: 2 TSP. OR 10ML 4 HOURS PO
     Route: 048
     Dates: start: 20130201, end: 20130201
  2. EQUATE TUSSIN CF [Suspect]
     Dosage: 2 TSP. OR 10ML 4 HOURS PO
     Route: 048
     Dates: start: 20130201, end: 20130201

REACTIONS (1)
  - Product quality issue [None]
